FAERS Safety Report 7425188-X (Version None)
Quarter: 2011Q2

REPORT INFORMATION
  Report Type: 
  Country: None (occurrence: None)
  Receive Date: 20110412
  Receipt Date: 20110328
  Transmission Date: 20111010
  Serious: Yes (Death)
  Sender: FDA-Public Use
  Company Number: 2011CP000048

PATIENT
  Age: 9 Year
  Sex: Male

DRUGS (2)
  1. TACHIPIRINA (PARACETAMOL) [Suspect]
     Indication: PYREXIA
     Dosage: IV
     Route: 042
     Dates: start: 20110309, end: 20110309
  2. PERFALGAN (PARACETAMOL) [Suspect]
     Dosage: 1X;IV
     Route: 042

REACTIONS (2)
  - ABDOMINAL PAIN [None]
  - HAEMATOCHEZIA [None]
